FAERS Safety Report 11124773 (Version 2)
Quarter: 2015Q2

REPORT INFORMATION
  Report Type: Report from Study
  Country: GR (occurrence: GR)
  Receive Date: 20150520
  Receipt Date: 20150522
  Transmission Date: 20150821
  Serious: Yes (Death)
  Sender: FDA-Public Use
  Company Number: GR-SA-2015SA065390

PATIENT

DRUGS (1)
  1. CABAZITAXEL [Suspect]
     Active Substance: CABAZITAXEL
     Indication: NON-SMALL CELL LUNG CANCER METASTATIC
     Dosage: CABAZITAXEL 25MG/M2 IV EVERY 21 DAYS
     Route: 042

REACTIONS (2)
  - Febrile neutropenia [Fatal]
  - Thrombocytopenia [Fatal]
